FAERS Safety Report 24860814 (Version 2)
Quarter: 2025Q1

REPORT INFORMATION
  Report Type: Spontaneous
  Country: US (occurrence: US)
  Receive Date: 20250120
  Receipt Date: 20250214
  Transmission Date: 20250409
  Serious: Yes (Other)
  Sender: RUBICON RESEARCH
  Company Number: US-Rubicon research Pvt ltd-2025000001

PATIENT
  Age: 15 Year
  Sex: Female

DRUGS (1)
  1. CLONAZEPAM [Suspect]
     Active Substance: CLONAZEPAM
     Indication: Epilepsy
     Route: 065

REACTIONS (7)
  - Seizure [Unknown]
  - Withdrawal syndrome [Unknown]
  - Malaise [Unknown]
  - Anxiety [Unknown]
  - Headache [Unknown]
  - Drug ineffective [Unknown]
  - Product quality issue [Unknown]
